FAERS Safety Report 5293871-0 (Version None)
Quarter: 2007Q2

REPORT INFORMATION
  Report Type: 
  Country: None (occurrence: None)
  Receive Date: 20070405
  Receipt Date: 20070329
  Transmission Date: 20071010
  Serious: Yes (Hospitalization)
  Sender: FDA-Public Use
  Company Number: 2007-01650

PATIENT
  Age: 46 Year
  Sex: Female

DRUGS (2)
  1. SULFAMETHOXAZOLE/TRIMETHOPRIM 800/160 (WATSON LABORATORIES) (SULFAMETH [Suspect]
     Indication: PYELONEPHRITIS
     Dosage: 2 TABLET, DAILY; ORAL
     Route: 048
     Dates: start: 20060101, end: 20060101
  2. OPIPRAMOL (OPIPRAMOL) UNK [Concomitant]

REACTIONS (1)
  - PSYCHOTIC DISORDER [None]
